FAERS Safety Report 4622738-3 (Version None)
Quarter: 2005Q1

REPORT INFORMATION
  Report Type: 
  Country: None (occurrence: None)
  Receive Date: 20050317
  Receipt Date: 20040826
  Transmission Date: 20050727
  Serious: Yes (Other)
  Sender: FDA-Public Use
  Company Number: PHEH2004US09272

PATIENT
  Age: 11 Year
  Sex: Female

DRUGS (5)
  1. TRILEPTAL [Suspect]
     Indication: BIPOLAR DISORDER
     Dosage: UNK, BID; ORAL
     Route: 048
     Dates: start: 20030101
  2. FOCALIN [Suspect]
     Dates: start: 20030101, end: 20040601
  3. BUPROPION HYDROCHLORIDE [Concomitant]
  4. MONTELUKAST SODIUM [Concomitant]
  5. ADVAIR (FLUTICASONE PROPIONATE, SALMETEROL XINAFOATE) [Concomitant]

REACTIONS (4)
  - CONTUSION [None]
  - LEUKOPENIA [None]
  - PLATELET COUNT DECREASED [None]
  - RETICULOCYTE COUNT DECREASED [None]
